FAERS Safety Report 11889939 (Version 1)
Quarter: 2016Q1

REPORT INFORMATION
  Report Type: Spontaneous
  Country: US (occurrence: US)
  Receive Date: 20160105
  Receipt Date: 20160105
  Transmission Date: 20160526
  Serious: No
  Sender: FDA-Public Use
  Company Number: US-PERRIGO-15US007380

PATIENT
  Age: 93 Year
  Sex: Female
  Weight: 43.99 kg

DRUGS (3)
  1. GUAIFENESIN 600 MG 498 [Suspect]
     Active Substance: GUAIFENESIN
     Indication: ACCIDENTAL EXPOSURE TO PRODUCT
     Dosage: 600 MG, EVERY 12 HOURS
     Route: 048
     Dates: start: 20150712, end: 20150713
  2. GUAIFENESIN 600 MG 498 [Suspect]
     Active Substance: GUAIFENESIN
     Dosage: 600 MG, TWICE IN 11 HOURS
     Route: 048
     Dates: start: 20150714, end: 20150715
  3. GUAIFENESIN 600 MG 498 [Suspect]
     Active Substance: GUAIFENESIN
     Indication: SECRETION DISCHARGE
     Dosage: 600 MG, EVERY 12 HOURS, PRN
     Route: 048
     Dates: start: 20150709, end: 20150711

REACTIONS (3)
  - Dizziness [Recovered/Resolved]
  - Nausea [Recovered/Resolved]
  - Wrong drug administered [Recovered/Resolved]

NARRATIVE: CASE EVENT DATE: 20150715
